FAERS Safety Report 7337809-0 (Version None)
Quarter: 2011Q1

REPORT INFORMATION
  Report Type: 
  Country: None (occurrence: None)
  Receive Date: 20110308
  Receipt Date: 20110303
  Transmission Date: 20110831
  Serious: Yes (Hospitalization)
  Sender: FDA-Public Use
  Company Number: US-GENZYME-FABR-1001799

PATIENT
  Sex: Male
  Weight: 74.3 kg

DRUGS (2)
  1. FABRAZYME [Suspect]
     Dosage: 1 MG/KG, Q2W
     Route: 042
     Dates: start: 20010220, end: 20040108
  2. FABRAZYME [Suspect]
     Indication: FABRY'S DISEASE
     Dosage: 70 MG, Q2W
     Route: 042
     Dates: start: 20050101

REACTIONS (2)
  - PNEUMONIA [None]
  - RESPIRATORY TRACT INFECTION VIRAL [None]
